FAERS Safety Report 9705819 (Version 2)
Quarter: 2013Q4

REPORT INFORMATION
  Report Type: Spontaneous
  Country: US (occurrence: US)
  Receive Date: 20131122
  Receipt Date: 20131122
  Transmission Date: 20140711
  Serious: No
  Sender: FDA-Public Use
  Company Number: US-GILEAD-2008-0017888

PATIENT
  Sex: Female

DRUGS (18)
  1. LETAIRIS [Suspect]
     Indication: PULMONARY ARTERIAL HYPERTENSION
     Route: 048
     Dates: start: 20080819
  2. TOPROX XL [Concomitant]
  3. LISINOPRIL [Concomitant]
  4. ZOCOR [Concomitant]
  5. ZOLOFT [Concomitant]
  6. FLUSOL [Concomitant]
  7. LORTAB [Concomitant]
  8. COUMADIN [Concomitant]
  9. IPRATROPIUM [Concomitant]
  10. ALDACTONE [Concomitant]
  11. BETAPACE [Concomitant]
  12. BUMEX [Concomitant]
  13. QVAR [Concomitant]
  14. XANAX [Concomitant]
  15. FLOVENT [Concomitant]
  16. PRILOSEC [Concomitant]
  17. POTASSIUM CHLORIDE [Concomitant]
  18. OXYGEN [Concomitant]

REACTIONS (4)
  - Night sweats [None]
  - Nausea [None]
  - Oedema peripheral [None]
  - Dyspnoea [None]
